FAERS Safety Report 14858365 (Version 1)
Quarter: 2018Q2

REPORT INFORMATION
  Report Type: Spontaneous
  Country: US (occurrence: US)
  Receive Date: 20180508
  Receipt Date: 20180508
  Transmission Date: 20180711
  Serious: Yes (Other)
  Sender: FDA-Public Use
  Company Number: US-STRIDES ARCOLAB LIMITED-2018SP003033

PATIENT

DRUGS (1)
  1. TENOFOVIR DISOPROXIL FUMARATE. [Suspect]
     Active Substance: TENOFOVIR DISOPROXIL FUMARATE
     Indication: HIV INFECTION
     Dosage: UNK
     Route: 065

REACTIONS (6)
  - Humerus fracture [Recovered/Resolved]
  - Hypophosphataemia [Recovered/Resolved]
  - Hip fracture [Recovered/Resolved]
  - Osteomalacia [Recovered/Resolved]
  - Fractured sacrum [Recovered/Resolved]
  - Pain [Recovered/Resolved]
